FAERS Safety Report 9050910 (Version 2)
Quarter: 2013Q1

REPORT INFORMATION
  Report Type: Report from Study
  Country: FR (occurrence: FR)
  Receive Date: 20130205
  Receipt Date: 20130227
  Transmission Date: 20140127
  Serious: Yes (Other)
  Sender: FDA-Public Use
  Company Number: FR-GENZYME-CAMP-1002657

PATIENT
  Age: 74 None
  Sex: Female

DRUGS (4)
  1. CAMPATH [Suspect]
     Indication: CHRONIC LYMPHOCYTIC LEUKAEMIA
     Dosage: 30 MG, 3X/W, DURING 4 WEEKS
     Route: 058
     Dates: start: 20120820, end: 20120927
  2. CAMPATH [Suspect]
     Dosage: 30 MG, Q2W
     Route: 058
     Dates: start: 20121004, end: 20121227
  3. ZELITREX [Concomitant]
     Indication: INFECTION PROPHYLAXIS
     Dosage: 500 MG, BID
     Route: 065
  4. BACTRIM [Concomitant]
     Indication: INFECTION PROPHYLAXIS
     Dosage: 1 TABLET/3/WEEK
     Route: 065

REACTIONS (4)
  - Paraneoplastic syndrome [Unknown]
  - Disease progression [Unknown]
  - Neutropenia [Recovered/Resolved]
  - Gastroenteritis [Recovered/Resolved]
